FAERS Safety Report 8436933-9 (Version None)
Quarter: 2012Q2

REPORT INFORMATION
  Report Type: 
  Country: None (occurrence: None)
  Receive Date: 20120614
  Receipt Date: 20120123
  Transmission Date: 20120825
  Serious: No
  Sender: FDA-Public Use
  Company Number: US-AMGEN-USASP2012004564

PATIENT
  Sex: Male

DRUGS (4)
  1. ARANESP [Suspect]
     Indication: RENAL FAILURE CHRONIC
     Dosage: 25 MUG, Q3WK
  2. FLOMAX [Concomitant]
  3. CARVEDILOL [Concomitant]
  4. NEXIUM [Concomitant]

REACTIONS (1)
  - INJECTION SITE PAIN [None]
